FAERS Safety Report 14084669 (Version 1)
Quarter: 2017Q4

REPORT INFORMATION
  Report Type: Spontaneous
  Country: US (occurrence: US)
  Receive Date: 20171013
  Receipt Date: 20171013
  Transmission Date: 20180321
  Serious: Yes (Other)
  Sender: FDA-Public Use
  Company Number: US-ASTRAZENECA-2017SF04512

PATIENT
  Age: 53 Year
  Sex: Female

DRUGS (1)
  1. NEXIUM 24HR [Suspect]
     Active Substance: ESOMEPRAZOLE MAGNESIUM
     Dosage: ^CONSUMED CAPSULES FOR 12 DAYS^
     Route: 048

REACTIONS (3)
  - Abdominal distension [Unknown]
  - Gastric infection [Unknown]
  - Flatulence [Unknown]
